FAERS Safety Report 8110744-6 (Version None)
Quarter: 2012Q1

REPORT INFORMATION
  Report Type: 
  Country: None (occurrence: None)
  Receive Date: 20120203
  Receipt Date: 20120125
  Transmission Date: 20120608
  Serious: Yes (Other)
  Sender: FDA-Public Use
  Company Number: CH-JNJFOC-20120112847

PATIENT
  Sex: Female

DRUGS (1)
  1. XARELTO [Suspect]
     Indication: DISSEMINATED INTRAVASCULAR COAGULATION
     Route: 065

REACTIONS (1)
  - ISCHAEMIC STROKE [None]
